FAERS Safety Report 9668702 (Version 1)
Quarter: 2013Q4

REPORT INFORMATION
  Report Type: Spontaneous
  Country: US (occurrence: US)
  Receive Date: 20131105
  Receipt Date: 20131105
  Transmission Date: 20140711
  Serious: Yes (Death)
  Sender: FDA-Public Use
  Company Number: US-ROCHE-1299487

PATIENT
  Age: 44 Year
  Sex: Male

DRUGS (5)
  1. AVASTIN [Suspect]
     Indication: LUNG NEOPLASM MALIGNANT
     Dosage: 10MG
     Route: 042
     Dates: start: 20110505
  2. NORMAL SALINE [Concomitant]
     Route: 042
     Dates: start: 20110505
  3. DECADRON [Concomitant]
     Route: 042
     Dates: start: 20110805
  4. KYTRIL [Concomitant]
     Route: 042
     Dates: start: 20110805
  5. THIOTEPA [Concomitant]
     Route: 037
     Dates: start: 20110805

REACTIONS (1)
  - Death [Fatal]
